FAERS Safety Report 19649151 (Version 3)
Quarter: 2021Q4

REPORT INFORMATION
  Report Type: Report from Study
  Country: None (occurrence: US)
  Receive Date: 20210803
  Receipt Date: 20211029
  Transmission Date: 20220303
  Serious: Yes (Hospitalization, Other)
  Sender: FDA-Public Use
  Company Number: US-ABBVIE-21K-163-4016700-00

PATIENT
  Sex: Female
  Weight: 90.35 kg

DRUGS (5)
  1. HUMIRA [Suspect]
     Active Substance: ADALIMUMAB
     Indication: Crohn^s disease
     Route: 058
     Dates: start: 2018, end: 202008
  2. HUMIRA [Suspect]
     Active Substance: ADALIMUMAB
     Route: 058
     Dates: start: 202009
  3. HUMIRA [Suspect]
     Active Substance: ADALIMUMAB
     Route: 058
  4. HUMIRA [Suspect]
     Active Substance: ADALIMUMAB
     Route: 058
  5. JANSSEN COVID-19 VACCINE [Concomitant]
     Active Substance: AD26.COV2.S
     Indication: COVID-19 immunisation
     Dosage: JOHNSON + JOHNSON
     Route: 030

REACTIONS (10)
  - Ovarian cyst [Not Recovered/Not Resolved]
  - Stomal hernia [Recovered/Resolved]
  - Stomal hernia [Not Recovered/Not Resolved]
  - Stomal varices [Not Recovered/Not Resolved]
  - Biliary obstruction [Recovered/Resolved]
  - Dyspepsia [Recovered/Resolved]
  - Weight increased [Not Recovered/Not Resolved]
  - Dehydration [Not Recovered/Not Resolved]
  - Pain [Not Recovered/Not Resolved]
  - Crohn^s disease [Not Recovered/Not Resolved]

NARRATIVE: CASE EVENT DATE: 20200101
